FAERS Safety Report 19855618 (Version 2)
Quarter: 2022Q1

REPORT INFORMATION
  Report Type: Spontaneous
  Country: US (occurrence: US)
  Receive Date: 20210920
  Receipt Date: 20220120
  Transmission Date: 20220424
  Serious: Yes (Other)
  Sender: FDA-Public Use
  Company Number: US-GILEAD-2021-0548487

PATIENT
  Sex: Male

DRUGS (27)
  1. ATRIPLA [Suspect]
     Active Substance: EFAVIRENZ\EMTRICITABINE\TENOFOVIR DISOPROXIL FUMARATE
     Indication: HIV infection
     Dosage: UNK
     Route: 048
     Dates: start: 2006, end: 2019
  2. ATRIPLA [Suspect]
     Active Substance: EFAVIRENZ\EMTRICITABINE\TENOFOVIR DISOPROXIL FUMARATE
     Dosage: UNK
     Route: 048
     Dates: start: 2010
  3. BIKTARVY [Concomitant]
     Active Substance: BICTEGRAVIR SODIUM\EMTRICITABINE\TENOFOVIR ALAFENAMIDE FUMARATE
  4. RETROVIR [Concomitant]
     Active Substance: ZIDOVUDINE
  5. SUSTIVA [Concomitant]
     Active Substance: EFAVIRENZ
  6. ZIAGEN [Concomitant]
     Active Substance: ABACAVIR SULFATE
  7. ZERIT [Concomitant]
     Active Substance: STAVUDINE
  8. CALCIUM CARBONATE\CHOLECALCIFEROL [Concomitant]
     Active Substance: CALCIUM CARBONATE\CHOLECALCIFEROL
  9. ASPIRIN [Concomitant]
     Active Substance: ASPIRIN
  10. ATORVASTATIN [Concomitant]
     Active Substance: ATORVASTATIN
  11. AMLODIPINE [Concomitant]
     Active Substance: AMLODIPINE BESYLATE
  12. BUPROPION [Concomitant]
     Active Substance: BUPROPION
  13. CLONAZEPAM [Concomitant]
     Active Substance: CLONAZEPAM
  14. CYCLOBENZAPRINE [Concomitant]
     Active Substance: CYCLOBENZAPRINE
  15. CYCLOSPORINE [Concomitant]
     Active Substance: CYCLOSPORINE
  16. DICLOFENAC DIETHYLAMINE [Concomitant]
     Active Substance: DICLOFENAC DIETHYLAMINE
  17. FLUTICASONE [Concomitant]
     Active Substance: FLUTICASONE
  18. HYDROXYCHLOROQUINE SULFATE [Concomitant]
     Active Substance: HYDROXYCHLOROQUINE SULFATE
  19. IMIPRAMINE HYDROCHLORIDE [Concomitant]
     Active Substance: IMIPRAMINE HYDROCHLORIDE
  20. VITAMINS NOS [Concomitant]
     Active Substance: VITAMINS
  21. IBUPROFEN [Concomitant]
     Active Substance: IBUPROFEN
  22. OMEPRAZOLE [Concomitant]
     Active Substance: OMEPRAZOLE
  23. TADALAFIL [Concomitant]
     Active Substance: TADALAFIL
  24. WARFARIN [Concomitant]
     Active Substance: WARFARIN
  25. ZOLEDRONIC ACID [Concomitant]
     Active Substance: ZOLEDRONIC ACID
  26. PRAVASTATIN [Concomitant]
     Active Substance: PRAVASTATIN
  27. DOXAZOSIN [Concomitant]
     Active Substance: DOXAZOSIN MESYLATE

REACTIONS (8)
  - Osteoporosis [Not Recovered/Not Resolved]
  - Bone density decreased [Unknown]
  - Rib fracture [Unknown]
  - Emotional distress [Not Recovered/Not Resolved]
  - Anhedonia [Not Recovered/Not Resolved]
  - Anxiety [Not Recovered/Not Resolved]
  - Pain [Not Recovered/Not Resolved]
  - Depression [Unknown]

NARRATIVE: CASE EVENT DATE: 20170101
